FAERS Safety Report 9159363 (Version 3)
Quarter: 2013Q2

REPORT INFORMATION
  Report Type: Spontaneous
  Country: JP (occurrence: JP)
  Receive Date: 20130313
  Receipt Date: 20130418
  Transmission Date: 20140414
  Serious: Yes (Life-Threatening, Hospitalization, Other)
  Sender: FDA-Public Use
  Company Number: JP-GENZYME-FABR-1003095

PATIENT
  Sex: Female

DRUGS (3)
  1. FABRAZYME [Suspect]
     Indication: FABRY^S DISEASE
     Dosage: DOSE REDUCTION
     Route: 042
     Dates: start: 200909, end: 20100721
  2. FABRAZYME [Suspect]
     Dosage: 1 MG/KG, UNK
     Route: 042
     Dates: end: 200909
  3. REPLAGAL [Concomitant]
     Indication: FABRY^S DISEASE
     Dosage: UNK
     Route: 065
     Dates: start: 20100804

REACTIONS (3)
  - Cardiac failure [Not Recovered/Not Resolved]
  - Fabry^s disease [Not Recovered/Not Resolved]
  - Renal failure [Not Recovered/Not Resolved]
